FAERS Safety Report 6247281-X (Version None)
Quarter: 2009Q2

REPORT INFORMATION
  Report Type: 
  Country: None (occurrence: None)
  Receive Date: 20090626
  Receipt Date: 20090619
  Transmission Date: 20091009
  Serious: Yes (Hospitalization)
  Sender: FDA-Public Use
  Company Number: A0785412A

PATIENT
  Sex: Male
  Weight: 50 kg

DRUGS (3)
  1. SERETIDE [Suspect]
     Indication: ASTHMA
     Dosage: 1PUFF PER DAY
     Route: 055
     Dates: start: 20080501
  2. AEROLIN [Concomitant]
     Dosage: 3PUFF SIX TIMES PER DAY
     Dates: start: 20090515
  3. PREDNISOLONE [Concomitant]
     Dosage: 10ML TWICE PER DAY
     Dates: start: 20090512

REACTIONS (1)
  - ASTHMATIC CRISIS [None]
